FAERS Safety Report 24584169 (Version 1)
Quarter: 2024Q4

REPORT INFORMATION
  Report Type: Report from Study
  Country: TW (occurrence: TW)
  Receive Date: 20241106
  Receipt Date: 20241106
  Transmission Date: 20250115
  Serious: Yes (Other)
  Sender: JOHNSON AND JOHNSON
  Company Number: TW-JNJFOC-20241075836

PATIENT
  Age: 58 Year
  Sex: Female

DRUGS (1)
  1. RYBREVANT [Suspect]
     Active Substance: AMIVANTAMAB-VMJW
     Indication: Product used for unknown indication
     Route: 065
     Dates: start: 20221201, end: 20240930

REACTIONS (2)
  - Adverse drug reaction [Unknown]
  - Drug resistance [Unknown]

NARRATIVE: CASE EVENT DATE: 20241001
